FAERS Safety Report 6307311-3 (Version None)
Quarter: 2009Q3

REPORT INFORMATION
  Report Type: 
  Country: None (occurrence: None)
  Receive Date: 20090811
  Receipt Date: 20090706
  Transmission Date: 20100115
  Serious: Yes (Hospitalization)
  Sender: FDA-Public Use
  Company Number: 1000007284

PATIENT
  Sex: Female

DRUGS (1)
  1. SAVELLA [Suspect]
     Dates: start: 20090101, end: 20090101

REACTIONS (1)
  - STEVENS-JOHNSON SYNDROME [None]
